FAERS Safety Report 8482001-X (Version None)
Quarter: 2012Q3

REPORT INFORMATION
  Report Type: 
  Country: None (occurrence: None)
  Receive Date: 20120702
  Receipt Date: 20120626
  Transmission Date: 20120928
  Serious: Yes (Other)
  Sender: FDA-Public Use
  Company Number: PHFR2011GB04949

PATIENT
  Sex: Male

DRUGS (3)
  1. CLOZARIL [Suspect]
     Indication: SCHIZOPHRENIA, PARANOID TYPE
     Dosage: 125 MG, (100 MG/AM AND 25 MG/PM)
     Route: 048
     Dates: start: 20110819
  2. CLOZARIL [Suspect]
     Dosage: 75 MG, BID
     Route: 048
     Dates: start: 20110825, end: 20110905
  3. CLOZARIL [Suspect]
     Dosage: UNK UKN, UNK
     Route: 048
     Dates: start: 20111130

REACTIONS (3)
  - DIFFERENTIAL WHITE BLOOD CELL COUNT ABNORMAL [None]
  - EOSINOPHIL COUNT INCREASED [None]
  - TACHYCARDIA [None]
